FAERS Safety Report 6904209-4 (Version None)
Quarter: 2010Q3

REPORT INFORMATION
  Report Type: 
  Country: None (occurrence: None)
  Receive Date: 20100804
  Receipt Date: 20090331
  Transmission Date: 20110219
  Serious: Yes (Other)
  Sender: FDA-Public Use
  Company Number: US-PFIZER INC-2009168906

PATIENT
  Sex: Female
  Weight: 68.038 kg

DRUGS (2)
  1. LYRICA [Suspect]
     Indication: FIBROMYALGIA
     Dates: end: 20081101
  2. ANALGESICS [Concomitant]

REACTIONS (8)
  - BLOOD COUNT ABNORMAL [None]
  - GAIT DISTURBANCE [None]
  - ILL-DEFINED DISORDER [None]
  - MYALGIA [None]
  - OEDEMA PERIPHERAL [None]
  - PLATELET COUNT DECREASED [None]
  - THROAT TIGHTNESS [None]
  - WEIGHT INCREASED [None]
